FAERS Safety Report 8045960-5 (Version None)
Quarter: 2012Q1

REPORT INFORMATION
  Report Type: 
  Country: None (occurrence: None)
  Receive Date: 20120113
  Receipt Date: 20120105
  Transmission Date: 20120608
  Serious: Yes (Other)
  Sender: FDA-Public Use
  Company Number: DE-GLAXOSMITHKLINE-D0073991A

PATIENT
  Sex: Female

DRUGS (5)
  1. DICLO [Suspect]
     Dosage: 50MG SEE DOSAGE TEXT
     Route: 048
     Dates: start: 20120105, end: 20120105
  2. ZANTAC [Suspect]
     Dosage: 300MG SEE DOSAGE TEXT
     Route: 048
     Dates: start: 20120105, end: 20120105
  3. INSIDON [Suspect]
     Dosage: 50MG SEE DOSAGE TEXT
     Route: 048
     Dates: start: 20120105, end: 20120105
  4. FEXOFENADINE HCL [Suspect]
     Dosage: 120MG SEE DOSAGE TEXT
     Route: 048
     Dates: start: 20120105, end: 20120105
  5. MYOSON [Suspect]
     Dosage: 4MG SEE DOSAGE TEXT
     Route: 048
     Dates: start: 20120105, end: 20120105

REACTIONS (2)
  - INTENTIONAL OVERDOSE [None]
  - SUICIDE ATTEMPT [None]
